FAERS Safety Report 10226642 (Version 1)
Quarter: 2014Q2

REPORT INFORMATION
  Report Type: Report from Study
  Country: MX (occurrence: MX)
  Receive Date: 20140609
  Receipt Date: 20140609
  Transmission Date: 20141212
  Serious: Yes (Other)
  Sender: FDA-Public Use
  Company Number: PHHY2014MX070593

PATIENT
  Age: 85 Year
  Sex: Female

DRUGS (3)
  1. EXFORGE [Suspect]
     Indication: HYPERTENSION
     Dosage: 1 DF (160/10 MG), DAILY
     Route: 048
     Dates: start: 201309
  2. GLIBENCLAMIDE [Concomitant]
     Indication: DIABETES MELLITUS
     Dosage: 1 DF, DAILY
     Dates: start: 201309
  3. SYMBICORT [Concomitant]
     Indication: ARRHYTHMIA
     Dosage: 1 DF, DAILY
     Dates: start: 201309

REACTIONS (3)
  - Arterial occlusive disease [Not Recovered/Not Resolved]
  - Dysgeusia [Recovered/Resolved]
  - Cough [Not Recovered/Not Resolved]
